FAERS Safety Report 5760348-5 (Version None)
Quarter: 2008Q2

REPORT INFORMATION
  Report Type: 
  Country: None (occurrence: None)
  Receive Date: 20080605
  Receipt Date: 20080529
  Transmission Date: 20081010
  Serious: Yes (Hospitalization)
  Sender: FDA-Public Use
  Company Number: NZ-MERCK-0805NZL00017

PATIENT
  Age: 77 Year
  Sex: Male

DRUGS (3)
  1. ZOCOR [Suspect]
     Route: 048
     Dates: start: 20010101, end: 20070901
  2. ZOCOR [Suspect]
     Route: 048
     Dates: start: 20070901
  3. ZOCOR [Suspect]
     Route: 048

REACTIONS (7)
  - CARDIAC OPERATION [None]
  - CONSTIPATION [None]
  - DIZZINESS [None]
  - DYSPEPSIA [None]
  - SENSORY DISTURBANCE [None]
  - TOOTHACHE [None]
  - WRONG TECHNIQUE IN DRUG USAGE PROCESS [None]
